FAERS Safety Report 5826332-8 (Version None)
Quarter: 2008Q3

REPORT INFORMATION
  Report Type: 
  Country: None (occurrence: None)
  Receive Date: 20080723
  Receipt Date: 20080717
  Transmission Date: 20090109
  Serious: Yes (Death, Hospitalization)
  Sender: FDA-Public Use
  Company Number: 100#08#2008-03560

PATIENT
  Age: 30 Year
  Sex: Male

DRUGS (7)
  1. METHOTREXATE [Suspect]
     Indication: ACUTE LYMPHOCYTIC LEUKAEMIA
     Dosage: 12 MG INTRATHECAL
     Route: 037
  2. HYDROCORTISONE [Suspect]
     Indication: ACUTE LYMPHOCYTIC LEUKAEMIA
  3. CYTOSINE ARABINOSIDE (CYTOSINE ARABINOSIDE) [Concomitant]
  4. VINCRISTINE [Concomitant]
  5. DAUNORUBICIN HCL [Concomitant]
  6. L-ASPARAGINASE (L-ASPARAGINASE) [Concomitant]
  7. PREDNISONE [Concomitant]

REACTIONS (6)
  - FEBRILE NEUTROPENIA [None]
  - NEUROGENIC BLADDER [None]
  - PNEUMONIA BACTERIAL [None]
  - RADICULOPATHY [None]
  - SEPSIS [None]
  - URINARY TRACT INFECTION [None]
